FAERS Safety Report 5151034-3 (Version None)
Quarter: 2006Q4

REPORT INFORMATION
  Report Type: 
  Country: None (occurrence: None)
  Receive Date: 20061115
  Receipt Date: 20061106
  Transmission Date: 20070319
  Serious: Yes (Disabling, Other)
  Sender: FDA-Public Use
  Company Number: CH-BRISTOL-MYERS SQUIBB COMPANY-13568183

PATIENT
  Age: 43 Year
  Sex: Female

DRUGS (3)
  1. KENACORT [Suspect]
     Indication: MUSCULOSKELETAL PAIN
     Dosage: 20 MG INJECTION IN MAY-2004 FOLLOWED BY 40 MG ONE MONTH LATER. 40 MG IN SPRING 2005.
     Route: 014
     Dates: start: 20040501, end: 20050101
  2. BUSPIRONE HCL [Concomitant]
  3. MIRTAZAPINE [Concomitant]

REACTIONS (2)
  - DRUG INEFFECTIVE [None]
  - SKIN ATROPHY [None]
